FAERS Safety Report 25180075 (Version 1)
Quarter: 2025Q2

REPORT INFORMATION
  Report Type: Report from Study
  Country: BR (occurrence: BR)
  Receive Date: 20250409
  Receipt Date: 20250409
  Transmission Date: 20250716
  Serious: Yes (Other)
  Sender: EMD SERONO INC
  Company Number: BR-Merck Healthcare KGaA-2025016927

PATIENT
  Age: 27 Year
  Sex: Female

DRUGS (4)
  1. MAVENCLAD [Suspect]
     Active Substance: CLADRIBINE
     Indication: Multiple sclerosis
     Dates: start: 20210719, end: 20210723
  2. MAVENCLAD [Suspect]
     Active Substance: CLADRIBINE
     Dates: start: 20210818, end: 20210822
  3. MAVENCLAD [Suspect]
     Active Substance: CLADRIBINE
     Dates: start: 20221129, end: 20221203
  4. MAVENCLAD [Suspect]
     Active Substance: CLADRIBINE
     Dates: start: 20221229, end: 20230102

REACTIONS (2)
  - Ocular neoplasm [Recovering/Resolving]
  - Eye disorder [Recovering/Resolving]

NARRATIVE: CASE EVENT DATE: 20231005
